FAERS Safety Report 4807076-8 (Version None)
Quarter: 2005Q4

REPORT INFORMATION
  Report Type: 
  Country: None (occurrence: None)
  Receive Date: 20051020
  Receipt Date: 20051020
  Transmission Date: 20060501
  Serious: Yes (Hospitalization)
  Sender: FDA-Public Use
  Company Number: None

PATIENT
  Age: 47 Year
  Sex: Male
  Weight: 171.8 kg

DRUGS (5)
  1. FELODIPINE [Suspect]
  2. ALBUTEROL [Concomitant]
  3. CARBAMAZEPINE [Concomitant]
  4. FUROSEMIDE [Concomitant]
  5. IPRATROPIUM BROMIDE [Concomitant]

REACTIONS (1)
  - RASH [None]
